FAERS Safety Report 10112347 (Version 2)
Quarter: 2014Q2

REPORT INFORMATION
  Report Type: Spontaneous
  Country: JP (occurrence: JP)
  Receive Date: 20140425
  Receipt Date: 20140519
  Transmission Date: 20141212
  Serious: Yes (Other)
  Sender: FDA-Public Use
  Company Number: JP-B.I. PHARMACEUTICALS,INC./RIDGEFIELD-2014-BI-18721YA

PATIENT
  Age: 67 Year
  Sex: Male

DRUGS (7)
  1. MAPELOR [Suspect]
     Indication: BENIGN PROSTATIC HYPERPLASIA
     Route: 065
  2. MICARDIS [Suspect]
     Indication: HYPERTENSION
     Route: 065
  3. MEXITIL [Suspect]
     Indication: PRODUCT USED FOR UNKNOWN INDICATION
     Route: 048
  4. MUCODYNE [Suspect]
     Indication: PRODUCT USED FOR UNKNOWN INDICATION
     Route: 048
     Dates: start: 20140403, end: 20140403
  5. CALONAL [Suspect]
     Indication: PRODUCT USED FOR UNKNOWN INDICATION
     Route: 048
  6. PARIET [Suspect]
     Indication: PRODUCT USED FOR UNKNOWN INDICATION
     Route: 048
  7. GENINAX [Suspect]
     Indication: OROPHARYNGEAL PAIN
     Dosage: 200 MG
     Route: 048
     Dates: start: 20140403, end: 20140403

REACTIONS (3)
  - Erythema [Recovered/Resolved]
  - Lip swelling [Not Recovered/Not Resolved]
  - Oropharyngeal pain [Unknown]
